FAERS Safety Report 9242437 (Version 1)
Quarter: 2013Q2

REPORT INFORMATION
  Report Type: Spontaneous
  Country: US (occurrence: US)
  Receive Date: 20130419
  Receipt Date: 20130419
  Transmission Date: 20140414
  Serious: Yes (Other)
  Sender: FDA-Public Use
  Company Number: US-JNJFOC-20130408466

PATIENT
  Sex: Female

DRUGS (3)
  1. ROGAINE FOR WOMEN REGULAR STRENGTH [Suspect]
     Route: 061
  2. ROGAINE FOR WOMEN REGULAR STRENGTH [Suspect]
     Indication: HAIR GROWTH ABNORMAL
     Dosage: A COUPLE OF YEARS
     Route: 061
  3. OTHER NUTRIENTS [Concomitant]
     Indication: ROUTINE HEALTH MAINTENANCE

REACTIONS (2)
  - Renal impairment [Unknown]
  - Underdose [Unknown]
